FAERS Safety Report 15695590 (Version 1)
Quarter: 2018Q4

REPORT INFORMATION
  Report Type: Spontaneous
  Country: US (occurrence: US)
  Receive Date: 20181206
  Receipt Date: 20181206
  Transmission Date: 20190205
  Serious: No
  Sender: FDA-Public Use
  Company Number: US-009507513-1812USA003308

PATIENT
  Sex: Male
  Weight: 108.8 kg

DRUGS (1)
  1. REBETRON [Suspect]
     Active Substance: INTERFERON ALFA-2B\RIBAVIRIN
     Dosage: UNK
     Route: 048

REACTIONS (1)
  - Drug ineffective [Unknown]
